FAERS Safety Report 19665583 (Version 1)
Quarter: 2021Q3

REPORT INFORMATION
  Report Type: Spontaneous
  Country: US (occurrence: US)
  Receive Date: 20210806
  Receipt Date: 20210806
  Transmission Date: 20211014
  Serious: Yes (Other)
  Sender: FDA-Public Use
  Company Number: US-ACCORD-220470

PATIENT
  Age: 43 Year

DRUGS (6)
  1. ZOFRAN [Concomitant]
     Active Substance: ONDANSETRON HYDROCHLORIDE
     Indication: NAUSEA
     Dosage: TAKE 1 PO QSH PRN
  2. DOCETAXEL ACCORD [Suspect]
     Active Substance: DOCETAXEL
     Indication: BREAST CANCER
     Dates: start: 20190925, end: 20200108
  3. HERCEPTIN [Suspect]
     Active Substance: TRASTUZUMAB
     Indication: BREAST CANCER
     Dates: start: 20190925, end: 20200108
  4. PANTOPRAZOLE [Concomitant]
     Active Substance: PANTOPRAZOLE
  5. ASCORBIC ACID/CALCIUM GLUCONATE/CUPRIC CARBONATE/BASIC/CYANOCOBALAMIN/ERGOCALCIFEROL/FERROUS SULFATE [Concomitant]
     Dosage: ?400 TABLET TAKE 1 PO DALLY
  6. PERJETA [Suspect]
     Active Substance: PERTUZUMAB
     Indication: BREAST CANCER
     Dates: start: 20190925, end: 20200108

REACTIONS (3)
  - Dacryostenosis acquired [Unknown]
  - Neutropenia [Unknown]
  - Alopecia [Unknown]
